FAERS Safety Report 4319070-4 (Version None)
Quarter: 2004Q1

REPORT INFORMATION
  Report Type: 
  Country: None (occurrence: None)
  Receive Date: 20040318
  Receipt Date: 20040318
  Transmission Date: 20041129
  Serious: Yes (Disabling)
  Sender: FDA-Public Use
  Company Number: None

PATIENT
  Age: 49 Year
  Sex: Male
  Weight: 85 kg

DRUGS (1)
  1. GENTAMICIN [Suspect]
     Indication: INFECTION PROPHYLAXIS
     Dosage: 240 MG 3 DAYS

REACTIONS (1)
  - OSCILLOPSIA [None]
